FAERS Safety Report 5950725-1 (Version None)
Quarter: 2008Q4

REPORT INFORMATION
  Report Type: 
  Country: None (occurrence: None)
  Receive Date: 20081022
  Receipt Date: 20080801
  Transmission Date: 20090506
  Serious: No
  Sender: FDA-Public Use
  Company Number: ALL1-2008-02181

PATIENT
  Age: 50 Year
  Sex: Female
  Weight: 63.5 kg

DRUGS (3)
  1. VYVANSE [Suspect]
     Indication: ATTENTION DEFICIT/HYPERACTIVITY DISORDER
     Dosage: 30 MG, 1X/DAY:QD, ORAL
     Route: 048
     Dates: start: 20080728, end: 20080801
  2. KLONOPIN [Concomitant]
  3. LAMICTAL [Concomitant]

REACTIONS (5)
  - ABDOMINAL PAIN [None]
  - CERVIX ENLARGEMENT [None]
  - DYSURIA [None]
  - HAEMATURIA [None]
  - RECTAL TENESMUS [None]
